FAERS Safety Report 5298462-3 (Version None)
Quarter: 2007Q2

REPORT INFORMATION
  Report Type: 
  Country: None (occurrence: None)
  Receive Date: 20070409
  Receipt Date: 20070402
  Transmission Date: 20071010
  Serious: Yes (Hospitalization)
  Sender: FDA-Public Use
  Company Number: 2006SP008477

PATIENT
  Age: 51 Year
  Sex: Male
  Weight: 66.2252 kg

DRUGS (3)
  1. PEG-INTRON [Suspect]
     Indication: HEPATITIS C
     Dosage: 108 MCG; QW; SC
     Route: 058
     Dates: start: 20060623, end: 20061215
  2. RIBAVIRIN [Suspect]
     Indication: HEPATITIS C
     Dosage: 800 MG; QD; PO
     Route: 048
     Dates: start: 20060623, end: 20061215
  3. TYLENOL [Concomitant]

REACTIONS (5)
  - COLONIC OBSTRUCTION [None]
  - DIARRHOEA [None]
  - INFLUENZA LIKE ILLNESS [None]
  - LARGE INTESTINAL HAEMORRHAGE [None]
  - RECTAL PROLAPSE [None]
